FAERS Safety Report 6387786-4 (Version None)
Quarter: 2009Q4

REPORT INFORMATION
  Report Type: 
  Country: None (occurrence: None)
  Receive Date: 20091005
  Receipt Date: 20090924
  Transmission Date: 20100525
  Serious: Yes (Hospitalization)
  Sender: FDA-Public Use
  Company Number: US-ROCHE-658591

PATIENT
  Sex: Male

DRUGS (5)
  1. PEGASYS [Suspect]
     Indication: HEPATITIS C
     Dosage: FORM: PFS
     Route: 065
     Dates: start: 20090109, end: 20090701
  2. COPEGUS [Suspect]
     Indication: HEPATITIS C
     Route: 065
     Dates: start: 20090109, end: 20090701
  3. ATIVAN [Concomitant]
  4. CYMBALTA [Concomitant]
     Indication: DEPRESSION
  5. TRAZODONE [Concomitant]

REACTIONS (9)
  - AGGRESSION [None]
  - ANXIETY [None]
  - ERECTILE DYSFUNCTION [None]
  - FIBROMYALGIA [None]
  - HALLUCINATION [None]
  - IRRITABILITY [None]
  - MEMORY IMPAIRMENT [None]
  - SELF-INJURIOUS IDEATION [None]
  - TINNITUS [None]
